FAERS Safety Report 7228113-X (Version None)
Quarter: 2011Q1

REPORT INFORMATION
  Report Type: 
  Country: None (occurrence: None)
  Receive Date: 20110114
  Receipt Date: 20110111
  Transmission Date: 20110831
  Serious: Yes (Other)
  Sender: FDA-Public Use
  Company Number: US-PFIZER INC-2011007419

PATIENT
  Sex: Male
  Weight: 95.238 kg

DRUGS (11)
  1. LIPITOR [Concomitant]
     Dosage: 80 MG, UNK
  2. TOPAMAX [Concomitant]
     Dosage: UNK
  3. NEURONTIN [Suspect]
     Indication: SOCIAL PHOBIA
     Dosage: 800 MG, 3X/DAY
     Route: 048
     Dates: start: 20000101
  4. NEURONTIN [Suspect]
     Indication: HEADACHE
  5. NEURONTIN [Suspect]
     Indication: NEUROPATHY PERIPHERAL
  6. LYRICA [Suspect]
     Indication: NEUROPATHY PERIPHERAL
     Dosage: UNK
     Route: 048
     Dates: start: 20070101, end: 20070101
  7. ACCUPRIL [Concomitant]
     Dosage: 60 MG, DAILY
  8. METOPROLOL [Concomitant]
     Indication: BLOOD PRESSURE ABNORMAL
     Dosage: 200 MG, DAILY
  9. ZOLOFT [Concomitant]
     Dosage: 150 MG, DAILY
  10. NEURONTIN [Suspect]
     Indication: MIGRAINE
  11. CRESTOR [Concomitant]
     Dosage: UNK

REACTIONS (2)
  - WEIGHT DECREASED [None]
  - CONFUSIONAL STATE [None]
